FAERS Safety Report 7751556-2 (Version None)
Quarter: 2011Q3

REPORT INFORMATION
  Report Type: 
  Country: None (occurrence: None)
  Receive Date: 20110914
  Receipt Date: 20110909
  Transmission Date: 20111222
  Serious: Yes (Other)
  Sender: FDA-Public Use
  Company Number: PHHY2011CN80861

PATIENT
  Age: 65 Year
  Sex: Male

DRUGS (1)
  1. VOLTAREN [Suspect]
     Indication: PAIN IN EXTREMITY
     Dosage: 1 PILL PER TIME, 1 OR 2 TIMES PER DAY
     Route: 048
     Dates: start: 20110903

REACTIONS (2)
  - VISUAL IMPAIRMENT [None]
  - CATARACT [None]
